FAERS Safety Report 6764918-7 (Version None)
Quarter: 2010Q2

REPORT INFORMATION
  Report Type: 
  Country: None (occurrence: None)
  Receive Date: 20100610
  Receipt Date: 20100602
  Transmission Date: 20101027
  Serious: Yes (Hospitalization)
  Sender: FDA-Public Use
  Company Number: US-AMGEN-KDL416143

PATIENT
  Sex: Male

DRUGS (2)
  1. ENBREL [Suspect]
     Indication: PSORIASIS
     Route: 058
     Dates: start: 20100503
  2. SORIATANE [Concomitant]

REACTIONS (3)
  - LOSS OF CONSCIOUSNESS [None]
  - RENAL FAILURE [None]
  - THERAPEUTIC RESPONSE DECREASED [None]
